FAERS Safety Report 9386302 (Version 1)
Quarter: 2013Q3

REPORT INFORMATION
  Report Type: Report from Study
  Country: ZA (occurrence: ZA)
  Receive Date: 20130708
  Receipt Date: 20130708
  Transmission Date: 20140515
  Serious: Yes (Hospitalization)
  Sender: FDA-Public Use
  Company Number: ZA-ROCHE-1245498

PATIENT
  Sex: Female

DRUGS (4)
  1. MIRCERA [Suspect]
     Indication: NEPHROGENIC ANAEMIA
     Route: 065
     Dates: start: 201203
  2. CARDURA [Concomitant]
     Route: 065
  3. COVERSYL [Concomitant]
     Route: 065
  4. ADALAT [Concomitant]
     Route: 065

REACTIONS (1)
  - Abdominal pain [Unknown]
